FAERS Safety Report 19034356 (Version 2)
Quarter: 2021Q2

REPORT INFORMATION
  Report Type: Spontaneous
  Country: JP (occurrence: JP)
  Receive Date: 20210319
  Receipt Date: 20210422
  Transmission Date: 20210717
  Serious: No
  Sender: FDA-Public Use
  Company Number: JP-DSJP-DSJ-2021-108104

PATIENT
  Age: 74 Year
  Sex: Male
  Weight: 53 kg

DRUGS (2)
  1. ENHERTU [Suspect]
     Active Substance: FAM-TRASTUZUMAB DERUXTECAN-NXKI
     Indication: HER2 POSITIVE GASTRIC CANCER
     Dosage: 6.4 MG/KG
     Route: 041
     Dates: start: 20210224, end: 20210224
  2. ENHERTU [Suspect]
     Active Substance: FAM-TRASTUZUMAB DERUXTECAN-NXKI
     Dosage: 5.4 MG/KG
     Route: 041
     Dates: start: 20210324, end: 20210413

REACTIONS (2)
  - Malaise [Unknown]
  - Neutrophil count decreased [Recovered/Resolved]

NARRATIVE: CASE EVENT DATE: 20210317
